FAERS Safety Report 5252355-6 (Version None)
Quarter: 2007Q1

REPORT INFORMATION
  Report Type: 
  Country: None (occurrence: None)
  Receive Date: 20070301
  Receipt Date: 20060720
  Transmission Date: 20070707
  Serious: Yes (Hospitalization)
  Sender: FDA-Public Use
  Company Number: US-BRISTOL-MYERS SQUIBB COMPANY-13449020

PATIENT
  Age: 46 Year
  Sex: Female

DRUGS (1)
  1. TAXOL [Suspect]
     Route: 042
     Dates: start: 20060720

REACTIONS (1)
  - INFUSION RELATED REACTION [None]
